FAERS Safety Report 4273743-0 (Version None)
Quarter: 2004Q1

REPORT INFORMATION
  Report Type: 
  Country: None (occurrence: None)
  Receive Date: 20040119
  Receipt Date: 20040101
  Transmission Date: 20041129
  Serious: Yes (Hospitalization)
  Sender: FDA-Public Use
  Company Number: PHEH2004US00568

PATIENT
  Age: 62 Year
  Sex: Female

DRUGS (7)
  1. ZELNORM [Suspect]
     Dosage: 6 MG, ONCE/SINGLE
     Route: 048
     Dates: start: 20031217, end: 20031217
  2. PREMARIN [Concomitant]
     Dosage: .625 MG, UNK
  3. VITAMIN C [Concomitant]
     Dosage: 500 MG, QD
  4. ACETYLSALICYLIC ACID SRT [Concomitant]
     Dosage: 81 MG, QD
  5. CALTRATE [Concomitant]
  6. VITAMIN E [Concomitant]
     Dosage: 400 IU, QD
  7. MULTI-VITAMINS [Concomitant]
     Dosage: UNK, QD
     Route: 048

REACTIONS (5)
  - COLITIS ISCHAEMIC [None]
  - HAEMATOCHEZIA [None]
  - HAEMORRHOIDS [None]
  - HYPOKALAEMIA [None]
  - WHITE BLOOD CELL COUNT INCREASED [None]
